FAERS Safety Report 21104010 (Version 3)
Quarter: 2022Q4

REPORT INFORMATION
  Report Type: Spontaneous
  Country: US (occurrence: US)
  Receive Date: 20220720
  Receipt Date: 20221031
  Transmission Date: 20230113
  Serious: Yes (Other)
  Sender: FDA-Public Use
  Company Number: US-BRISTOL-MYERS SQUIBB COMPANY-2022-072277

PATIENT
  Age: 75 Year
  Sex: Male

DRUGS (2)
  1. REVLIMID [Suspect]
     Active Substance: LENALIDOMIDE
     Indication: Product used for unknown indication
     Dosage: DAILY
     Route: 048
     Dates: start: 20201023
  2. REVLIMID [Suspect]
     Active Substance: LENALIDOMIDE
     Dosage: DAILY
     Route: 048
     Dates: start: 202206

REACTIONS (7)
  - Gout [Unknown]
  - Neuropathy peripheral [Unknown]
  - Insomnia [Unknown]
  - Pain [Unknown]
  - Swelling [Unknown]
  - Bursitis [Unknown]
  - Feeling hot [Unknown]

NARRATIVE: CASE EVENT DATE: 20211102
